FAERS Safety Report 25103865 (Version 1)
Quarter: 2025Q1

REPORT INFORMATION
  Report Type: Spontaneous
  Country: RU (occurrence: RU)
  Receive Date: 20250321
  Receipt Date: 20250321
  Transmission Date: 20250409
  Serious: Yes (Other)
  Sender: ROCHE
  Company Number: RU-ROCHE-10000234507

PATIENT
  Age: 51 Year
  Sex: Female

DRUGS (4)
  1. TRASTUZUMAB [Suspect]
     Active Substance: TRASTUZUMAB
     Indication: Product used for unknown indication
     Route: 065
  2. PERTUZUMAB [Suspect]
     Active Substance: PERTUZUMAB
     Indication: Product used for unknown indication
     Route: 065
  3. ADO-TRASTUZUMAB EMTANSINE [Suspect]
     Active Substance: ADO-TRASTUZUMAB EMTANSINE
     Indication: Product used for unknown indication
     Route: 065
  4. DOCETAXEL [Suspect]
     Active Substance: DOCETAXEL
     Indication: Product used for unknown indication
     Route: 065

REACTIONS (11)
  - Disease progression [Unknown]
  - Lymphadenopathy [Unknown]
  - Hydrothorax [Unknown]
  - Osteosclerosis [Unknown]
  - Neoplasm [Unknown]
  - Pleural effusion [Unknown]
  - Atelectasis [Unknown]
  - Pulmonary mass [Unknown]
  - Metastases to central nervous system [Unknown]
  - Hepatic lesion [Unknown]
  - Lung neoplasm [Unknown]
